FAERS Safety Report 9578748 (Version 2)
Quarter: 2013Q4

REPORT INFORMATION
  Report Type: Spontaneous
  Country: MY (occurrence: MY)
  Receive Date: 20131001
  Receipt Date: 20131021
  Transmission Date: 20140711
  Serious: Yes (Death)
  Sender: FDA-Public Use
  Company Number: MY-ROCHE-1282149

PATIENT
  Sex: Female
  Weight: 44 kg

DRUGS (5)
  1. KADCYLA [Suspect]
     Indication: BREAST CANCER
     Route: 041
     Dates: start: 20130827, end: 20130827
  2. COVERSYL [Concomitant]
     Route: 048
     Dates: start: 20130827, end: 20130910
  3. DEXAMETHASONE [Concomitant]
     Route: 048
     Dates: start: 20130827, end: 20130829
  4. PREVACID [Concomitant]
     Route: 048
     Dates: start: 20130827, end: 20130830
  5. METOCLOPRAMIDE [Concomitant]
     Route: 048
     Dates: start: 20130827, end: 20130830

REACTIONS (1)
  - Breast cancer metastatic [Fatal]
